FAERS Safety Report 11275081 (Version 1)
Quarter: 2015Q3

REPORT INFORMATION
  Report Type: Spontaneous
  Country: US (occurrence: None)
  Receive Date: 20150714
  Receipt Date: 20150714
  Transmission Date: 20151125
  Serious: Yes (Hospitalization)
  Sender: FDA-Public Use
  Company Number: None

PATIENT
  Age: 78 Year
  Sex: Male
  Weight: 74.6 kg

DRUGS (2)
  1. OXALIPLATIN. [Suspect]
     Active Substance: OXALIPLATIN
     Indication: RECTAL ADENOCARCINOMA
     Route: 042
     Dates: start: 20150506, end: 20150506
  2. CAPECITABINE. [Suspect]
     Active Substance: CAPECITABINE
     Indication: RECTAL ADENOCARCINOMA
     Route: 048
     Dates: start: 20150506, end: 20150527

REACTIONS (7)
  - Nausea [None]
  - Intestinal ischaemia [None]
  - Anaemia [None]
  - Leukopenia [None]
  - Vomiting [None]
  - Small intestinal obstruction [None]
  - Thrombocytopenia [None]

NARRATIVE: CASE EVENT DATE: 20150527
